FAERS Safety Report 4603846-X (Version None)
Quarter: 2005Q1

REPORT INFORMATION
  Report Type: 
  Country: None (occurrence: None)
  Receive Date: 20050308
  Receipt Date: 20050223
  Transmission Date: 20050727
  Serious: Yes (Hospitalization)
  Sender: FDA-Public Use
  Company Number: 2005038149

PATIENT
  Age: 28 Year
  Sex: Female

DRUGS (2)
  1. ZIPRASIDONE (CAPS) (ZIPRASIDONE) [Suspect]
     Indication: SCHIZOPHRENIA
     Dosage: 40 MG
  2. HALOPERIDOL [Suspect]
     Indication: AGITATION

REACTIONS (19)
  - ABDOMINAL OPERATION [None]
  - ABNORMAL BEHAVIOUR [None]
  - AGITATION [None]
  - BLOOD PRESSURE DIASTOLIC INCREASED [None]
  - COGWHEEL RIGIDITY [None]
  - CONFUSIONAL STATE [None]
  - CREATINE PHOSPHOKINASE DECREASED [None]
  - DROOLING [None]
  - DRUG TOXICITY [None]
  - FEELING JITTERY [None]
  - HEART RATE INCREASED [None]
  - LEUKOCYTOSIS [None]
  - MENTAL STATUS CHANGES [None]
  - MOVEMENT DISORDER [None]
  - POVERTY OF SPEECH [None]
  - PSYCHOTIC DISORDER [None]
  - PYREXIA [None]
  - SEPSIS [None]
  - TREMOR [None]
